FAERS Safety Report 9306543 (Version 3)
Quarter: 2013Q3

REPORT INFORMATION
  Report Type: Spontaneous
  Country: US (occurrence: None)
  Receive Date: 20130326
  Receipt Date: 20130815
  Transmission Date: 20140515
  Serious: Yes (Other)
  Sender: FDA-Public Use
  Company Number: ADR-2010-9171

PATIENT
  Sex: Female

DRUGS (1)
  1. BACLOFEN [Suspect]
     Indication: MUSCLE SPASTICITY

REACTIONS (14)
  - Tremor [None]
  - Anxiety [None]
  - Economic problem [None]
  - Hyperhidrosis [None]
  - Drug dose omission [None]
  - Muscle spasticity [None]
  - Musculoskeletal stiffness [None]
  - Device issue [None]
  - Muscle spasms [None]
  - Asthenia [None]
  - Decubitus ulcer [None]
  - No therapeutic response [None]
  - Akathisia [None]
  - Feeling drunk [None]
